FAERS Safety Report 9160391 (Version 5)
Quarter: 2013Q2

REPORT INFORMATION
  Report Type: Report from Study
  Country: CA (occurrence: CA)
  Receive Date: 20130313
  Receipt Date: 20130404
  Transmission Date: 20140414
  Serious: Yes (Death, Hospitalization, Other)
  Sender: FDA-Public Use
  Company Number: CA-ROCHE-1201167

PATIENT
  Age: 63 Year
  Sex: Male
  Weight: 97 kg

DRUGS (6)
  1. PEGASYS [Suspect]
     Indication: HEPATITIS C
     Route: 058
     Dates: start: 20120718, end: 20130226
  2. COPEGUS [Suspect]
     Indication: HEPATITIS C
     Route: 048
     Dates: start: 20120718, end: 20130305
  3. INCIVEK [Suspect]
     Indication: HEPATITIS C
     Route: 065
     Dates: start: 20120718, end: 20121024
  4. AVALIDE [Concomitant]
  5. ASPIRIN [Concomitant]
     Route: 065
  6. IMOVANE [Concomitant]
     Indication: INSOMNIA

REACTIONS (12)
  - Death [Fatal]
  - Hepatic failure [Not Recovered/Not Resolved]
  - Abdominal wall abscess [Recovering/Resolving]
  - Ascites [Not Recovered/Not Resolved]
  - Platelet count decreased [Recovering/Resolving]
  - Cyst [Unknown]
  - Pleural effusion [Recovering/Resolving]
  - Abdominal abscess [Recovering/Resolving]
  - Renal failure [Unknown]
  - Infection [Unknown]
  - Respiratory tract congestion [Unknown]
  - Anaemia [Recovered/Resolved]
